FAERS Safety Report 9784287 (Version 1)
Quarter: 2013Q4

REPORT INFORMATION
  Report Type: Spontaneous
  Country: US (occurrence: US)
  Receive Date: 20131226
  Receipt Date: 20131226
  Transmission Date: 20140711
  Serious: No
  Sender: FDA-Public Use
  Company Number: US-BIOGENIDEC-2013BI122242

PATIENT
  Age: 55 Year
  Sex: Female

DRUGS (2)
  1. TECFIDERA [Suspect]
     Indication: MULTIPLE SCLEROSIS
     Dates: start: 20131104
  2. AVONEX [Concomitant]
     Indication: MULTIPLE SCLEROSIS
     Route: 030

REACTIONS (9)
  - Parasite stool test positive [Unknown]
  - Pain [Not Recovered/Not Resolved]
  - Constipation [Unknown]
  - Nasopharyngitis [Recovered/Resolved]
  - Laryngitis [Unknown]
  - Viral infection [Unknown]
  - Dehydration [Recovered/Resolved]
  - White blood cell count increased [Unknown]
  - Diarrhoea [Unknown]
